FAERS Safety Report 14587179 (Version 2)
Quarter: 2018Q1

REPORT INFORMATION
  Report Type: Spontaneous
  Country: DE (occurrence: DE)
  Receive Date: 20180301
  Receipt Date: 20180327
  Transmission Date: 20180509
  Serious: Yes (Other)
  Sender: FDA-Public Use
  Company Number: DE-JNJFOC-20180238556

PATIENT
  Age: 37 Year
  Sex: Female

DRUGS (1)
  1. TRABECTEDIN [Suspect]
     Active Substance: TRABECTEDIN
     Indication: LIPOSARCOMA
     Route: 042
     Dates: start: 20170406

REACTIONS (2)
  - Thrombosis [Recovering/Resolving]
  - Arteritis [Not Recovered/Not Resolved]

NARRATIVE: CASE EVENT DATE: 20171214
